FAERS Safety Report 11898546 (Version 2)
Quarter: 2016Q1

REPORT INFORMATION
  Report Type: Spontaneous
  Country: PE (occurrence: PE)
  Receive Date: 20160108
  Receipt Date: 20160112
  Transmission Date: 20160526
  Serious: Yes (Death, Other)
  Sender: FDA-Public Use
  Company Number: PE-SA-2016SA002007

PATIENT
  Age: 30 Year
  Sex: Male
  Weight: 50 kg

DRUGS (1)
  1. CEREZYME [Suspect]
     Active Substance: IMIGLUCERASE
     Indication: GAUCHER^S DISEASE TYPE I
     Dosage: DOSE- 8VIALS/ INFUSION?UNITS8VIALS (400UI/VIAL)
     Route: 041
     Dates: start: 20150813, end: 20151027

REACTIONS (5)
  - Pain [Unknown]
  - Cardiac failure [Fatal]
  - Splenic rupture [Unknown]
  - Rib fracture [Unknown]
  - Road traffic accident [Unknown]

NARRATIVE: CASE EVENT DATE: 20151225
